FAERS Safety Report 24681614 (Version 1)
Quarter: 2024Q4

REPORT INFORMATION
  Report Type: Spontaneous
  Country: GB (occurrence: GB)
  Receive Date: 20241130
  Receipt Date: 20241130
  Transmission Date: 20250114
  Serious: Yes (Life-Threatening)
  Sender: ALEXION PHARMACEUTICALS
  Company Number: GB-MHRA-EMIS-4113-1bce372c-1203-49f7-9004-cdbe4b9c41d1

PATIENT
  Age: 66 Year
  Weight: 64 kg

DRUGS (15)
  1. CRESTOR [Suspect]
     Active Substance: ROSUVASTATIN CALCIUM
     Dosage: ONE TO BE TAKEN EACH DAY
     Route: 065
  2. CRESTOR [Suspect]
     Active Substance: ROSUVASTATIN CALCIUM
     Dosage: ONE TO BE TAKEN EACH DAY
  3. CRESTOR [Suspect]
     Active Substance: ROSUVASTATIN CALCIUM
     Dosage: ONE TO BE TAKEN EACH DAY
     Route: 065
  4. CRESTOR [Suspect]
     Active Substance: ROSUVASTATIN CALCIUM
     Dosage: ONE TO BE TAKEN EACH DAY
  5. AMOXICILLIN [Concomitant]
     Active Substance: AMOXICILLIN
     Indication: Lung consolidation
     Dosage: ONE TO BE TAKEN THREE TIMES A DAY
  6. AMOXICILLIN [Concomitant]
     Active Substance: AMOXICILLIN
     Dosage: ONE TO BE TAKEN THREE TIMES A DAY
     Route: 065
  7. PREDNISOLONE [Concomitant]
     Active Substance: PREDNISOLONE
     Indication: Adverse drug reaction
     Dosage: SIX TO BE TAKEN EACH DAY
     Route: 065
  8. PREDNISOLONE [Concomitant]
     Active Substance: PREDNISOLONE
     Dosage: SIX TO BE TAKEN EACH DAY
  9. PREDNISOLONE [Concomitant]
     Active Substance: PREDNISOLONE
     Dosage: SIX TO BE TAKEN EACH DAY
     Route: 065
  10. PREDNISOLONE [Concomitant]
     Active Substance: PREDNISOLONE
     Dosage: SIX TO BE TAKEN EACH DAY
  11. MEBEVERINE [Concomitant]
     Active Substance: MEBEVERINE
     Indication: Abdominal pain
     Dosage: ONE TO BE TAKEN THREE TIMES A DAY TWENTY MINUTES BEFORE FOOD
  12. MEBEVERINE [Concomitant]
     Active Substance: MEBEVERINE
     Dosage: ONE TO BE TAKEN THREE TIMES A DAY TWENTY MINUTES BEFORE FOOD
     Route: 065
  13. ATORVASTATIN [Concomitant]
     Active Substance: ATORVASTATIN
     Dosage: ONE TO BE TAKEN AT BEDTIME
  14. ATORVASTATIN [Concomitant]
     Active Substance: ATORVASTATIN
     Dosage: ONE TO BE TAKEN AT BEDTIME
     Route: 065
  15. Comirnaty [Concomitant]
     Dosage: 0.3 ML INTRAMUSCULAR

REACTIONS (1)
  - Dyspnoea [Recovered/Resolved]
